FAERS Safety Report 7561540-X (Version None)
Quarter: 2011Q2

REPORT INFORMATION
  Report Type: 
  Country: None (occurrence: None)
  Receive Date: 20110621
  Receipt Date: 20100728
  Transmission Date: 20111010
  Serious: No
  Sender: FDA-Public Use
  Company Number: US-ASTRAZENECA-2010SE30613

PATIENT
  Age: 11 Year
  Sex: Male

DRUGS (2)
  1. ASTELIN [Concomitant]
  2. PULMICORT FLEXHALER [Suspect]
     Indication: ASTHMA
     Dosage: 180 MCG TWO PUFFS TWICE A DAY
     Route: 055
     Dates: start: 20060101

REACTIONS (2)
  - GINGIVAL DISORDER [None]
  - TOOTH DISORDER [None]
